FAERS Safety Report 7419275-X (Version None)
Quarter: 2011Q2

REPORT INFORMATION
  Report Type: 
  Country: None (occurrence: None)
  Receive Date: 20110415
  Receipt Date: 20110413
  Transmission Date: 20111010
  Serious: Yes (Death)
  Sender: FDA-Public Use
  Company Number: US-B.I. PHARMACEUTICALS,INC./RIDGEFIELD-2011-BP-03245BP

PATIENT
  Sex: Male

DRUGS (17)
  1. BUMETANIDE [Concomitant]
     Dosage: 4 MG
     Route: 048
  2. DOXAZOSIN [Concomitant]
     Dosage: 4 MG
     Route: 048
  3. LEVIMIR INSULIN [Concomitant]
     Route: 058
  4. COMBIVENT [Concomitant]
     Dosage: 4 PUF
     Route: 055
  5. STARLIX [Concomitant]
     Route: 048
  6. HOMRONE THERAPY [Concomitant]
     Indication: PROSTATE CANCER
  7. ACTOS [Concomitant]
     Dosage: 30 MG
     Route: 048
  8. ADVAIR HFA [Concomitant]
     Route: 048
  9. ARANESP [Concomitant]
     Route: 058
  10. VITAMIN B-12 [Concomitant]
     Dosage: 1000 MCG
     Route: 048
  11. PRADAXA [Suspect]
     Indication: ATRIAL FIBRILLATION
     Dates: start: 20110126, end: 20110209
  12. ASPIRIN [Concomitant]
     Dosage: 81 MG
     Route: 048
  13. HYDROCHLOROTHIAZIDE [Concomitant]
     Dosage: 25 MG
     Route: 048
  14. NORVASC [Concomitant]
     Dosage: 10 MG
     Route: 048
  15. ALLOPURINOL [Concomitant]
     Dosage: 200 MG
     Route: 048
  16. CALCET [Concomitant]
  17. TOPROL-XL [Concomitant]
     Dosage: 50 MG
     Route: 048

REACTIONS (4)
  - THROMBOSIS [None]
  - GENERAL PHYSICAL HEALTH DETERIORATION [None]
  - DEATH [None]
  - HAEMORRHAGE [None]
